FAERS Safety Report 10029085 (Version 4)
Quarter: 2015Q3

REPORT INFORMATION
  Report Type: Spontaneous
  Country: US (occurrence: US)
  Receive Date: 20140321
  Receipt Date: 20150727
  Transmission Date: 20151125
  Serious: Yes (Death, Other)
  Sender: FDA-Public Use
  Company Number: US-SANOFI-AVENTIS-2012SA037899

PATIENT
  Age: 63 Year
  Sex: Female

DRUGS (5)
  1. PLAVIX [Suspect]
     Active Substance: CLOPIDOGREL BISULFATE
     Indication: ACUTE CORONARY SYNDROME
     Route: 048
     Dates: start: 20040101, end: 20111231
  2. ASPIRIN. [Concomitant]
     Active Substance: ASPIRIN
  3. ASPIRIN. [Concomitant]
     Active Substance: ASPIRIN
  4. PLAVIX [Suspect]
     Active Substance: CLOPIDOGREL BISULFATE
     Indication: STENT PLACEMENT
     Route: 048
     Dates: start: 20040101, end: 20111231
  5. WARFARIN [Concomitant]
     Active Substance: WARFARIN

REACTIONS (6)
  - Myocardial infarction [Recovered/Resolved]
  - Epistaxis [Unknown]
  - Death [Fatal]
  - Multiple injuries [Recovered/Resolved]
  - Cerebral haemorrhage [Recovered/Resolved]
  - Cerebrovascular accident [Recovered/Resolved]

NARRATIVE: CASE EVENT DATE: 201108
